FAERS Safety Report 11127950 (Version 1)
Quarter: 2015Q2

REPORT INFORMATION
  Report Type: Report from Study
  Country: BR (occurrence: BR)
  Receive Date: 20150521
  Receipt Date: 20150521
  Transmission Date: 20150821
  Serious: Yes (Death, Hospitalization)
  Sender: FDA-Public Use
  Company Number: BR-B.I. PHARMACEUTICALS,INC./RIDGEFIELD-2015-BI-25099BR

PATIENT
  Age: 64 Year
  Sex: Male
  Weight: 50 kg

DRUGS (1)
  1. AFATINIB [Suspect]
     Active Substance: AFATINIB
     Indication: NON-SMALL CELL LUNG CANCER
     Dosage: 40 MG
     Route: 048
     Dates: start: 20150422, end: 20150501

REACTIONS (9)
  - Malignant neoplasm progression [Fatal]
  - Confusional state [Fatal]
  - Diarrhoea [Not Recovered/Not Resolved]
  - Pyrexia [Recovered/Resolved]
  - Consciousness fluctuating [Not Recovered/Not Resolved]
  - Malnutrition [Not Recovered/Not Resolved]
  - General physical health deterioration [Unknown]
  - Dehydration [Not Recovered/Not Resolved]
  - Blood sodium abnormal [Recovered/Resolved]

NARRATIVE: CASE EVENT DATE: 20150426
